FAERS Safety Report 9502775 (Version 2)
Quarter: 2013Q3

REPORT INFORMATION
  Report Type: Report from Study
  Country: US (occurrence: US)
  Receive Date: 20130906
  Receipt Date: 20130925
  Transmission Date: 20140515
  Serious: Yes (Other)
  Sender: FDA-Public Use
  Company Number: US-JNJFOC-20130900532

PATIENT
  Sex: Male
  Weight: 79.38 kg

DRUGS (11)
  1. REMICADE [Suspect]
     Indication: CROHN^S DISEASE
     Route: 042
     Dates: start: 2010
  2. MORPHINE [Concomitant]
     Indication: BACK PAIN
     Route: 048
     Dates: start: 2007
  3. HYDROCODONE [Concomitant]
     Indication: BACK PAIN
     Route: 048
     Dates: start: 2003
  4. LYRICA [Concomitant]
     Indication: PAIN
     Route: 048
  5. LEVOTHYROXINE [Concomitant]
     Indication: THYROID DISORDER
     Route: 048
  6. CYMBALTA [Concomitant]
     Indication: PAIN
     Route: 048
  7. ALENDRONATE [Concomitant]
     Indication: OSTEOPOROSIS
     Route: 048
  8. VITAMIN B 12 [Concomitant]
     Route: 048
  9. VITAMIN D [Concomitant]
     Indication: OSTEOPOROSIS
     Route: 048
  10. AZATHIOPRINE [Concomitant]
     Indication: CROHN^S DISEASE
     Route: 048
  11. FOLIC ACID [Concomitant]
     Indication: CROHN^S DISEASE
     Route: 048

REACTIONS (5)
  - Wound [Not Recovered/Not Resolved]
  - Skin exfoliation [Not Recovered/Not Resolved]
  - Alopecia [Not Recovered/Not Resolved]
  - Pruritus [Not Recovered/Not Resolved]
  - Rash [Not Recovered/Not Resolved]
